FAERS Safety Report 8782822 (Version 4)
Quarter: 2012Q4

REPORT INFORMATION
  Report Type: 
  Country: US (occurrence: US)
  Receive Date: 20120913
  Receipt Date: 20121105
  Transmission Date: 20130627
  Serious: Yes (Life-Threatening, Hospitalization, Other)
  Sender: FDA-Public Use
  Company Number: US-ACTELION-A-US2012-71015

PATIENT
  Age: 55 Year
  Sex: Male

DRUGS (5)
  1. VELETRI [Suspect]
     Indication: PULMONARY ARTERIAL HYPERTENSION
     Dosage: 22 ng/kg, per min
     Route: 042
     Dates: start: 20120522
  2. TRACLEER [Suspect]
     Indication: PULMONARY ARTERIAL HYPERTENSION
     Dosage: UNK
     Route: 048
  3. VANCOMYCIN [Suspect]
     Dosage: 4 days
  4. SILDENAFIL [Concomitant]
  5. PRADAXA [Concomitant]

REACTIONS (7)
  - Device related sepsis [Not Recovered/Not Resolved]
  - Septic shock [Recovered/Resolved]
  - Hypovolaemia [Recovering/Resolving]
  - Acute respiratory failure [Unknown]
  - Renal failure acute [Recovering/Resolving]
  - Micrococcus infection [Not Recovered/Not Resolved]
  - Hypotension [Not Recovered/Not Resolved]
